FAERS Safety Report 24056676 (Version 1)
Quarter: 2024Q3

REPORT INFORMATION
  Report Type: Spontaneous
  Country: US (occurrence: US)
  Receive Date: 20240705
  Receipt Date: 20240705
  Transmission Date: 20241016
  Serious: No
  Sender: EISAI
  Company Number: US-Eisai-EC-2024-164313

PATIENT
  Sex: Female

DRUGS (3)
  1. LEQEMBI [Suspect]
     Active Substance: LECANEMAB-IRMB
     Indication: Product used for unknown indication
     Dosage: DOSE UNKNOWN
     Route: 042
     Dates: start: 20240115
  2. NEXLETOL [Concomitant]
     Active Substance: BEMPEDOIC ACID
  3. SILDENAFIL [Concomitant]
     Active Substance: SILDENAFIL

REACTIONS (1)
  - Blood cholesterol increased [Unknown]

NARRATIVE: CASE EVENT DATE: 20240101
